FAERS Safety Report 4505198-2 (Version None)
Quarter: 2004Q4

REPORT INFORMATION
  Report Type: 
  Country: None (occurrence: None)
  Receive Date: 20041118
  Receipt Date: 20041118
  Transmission Date: 20050328
  Serious: Yes (Hospitalization)
  Sender: FDA-Public Use
  Company Number: None

PATIENT
  Age: 50 Year
  Sex: Male
  Weight: 67.7 kg

DRUGS (2)
  1. CISPLATIN [Suspect]
     Indication: LARYNGEAL CANCER STAGE IV
     Dosage: 195 MG IV DAY 1 + 22
     Route: 042
     Dates: start: 20040913, end: 20041004
  2. RADIATION THERAPY [Suspect]
     Dosage: 72 GY / 42 FX FOR 6 WK
     Dates: start: 20040913, end: 20041022

REACTIONS (4)
  - MARKEDLY REDUCED DIETARY INTAKE [None]
  - MUCOSAL INFLAMMATION [None]
  - PAIN [None]
  - PYREXIA [None]
